FAERS Safety Report 25165204 (Version 1)
Quarter: 2025Q2

REPORT INFORMATION
  Report Type: Report from Study
  Country: FI (occurrence: FI)
  Receive Date: 20250407
  Receipt Date: 20250407
  Transmission Date: 20250717
  Serious: Yes (Hospitalization)
  Sender: ABBVIE
  Company Number: FI-ABBVIE-6211461

PATIENT
  Age: 67 Year
  Sex: Male

DRUGS (1)
  1. FOSCARBIDOPA\FOSLEVODOPA [Suspect]
     Active Substance: FOSCARBIDOPA\FOSLEVODOPA
     Indication: Parkinson^s disease
     Route: 058
     Dates: start: 20250212

REACTIONS (3)
  - Musculoskeletal stiffness [Unknown]
  - Catheter site haemorrhage [Unknown]
  - Catheter site mass [Unknown]

NARRATIVE: CASE EVENT DATE: 20250101
